FAERS Safety Report 8694654 (Version 2)
Quarter: 2012Q4

REPORT INFORMATION
  Report Type: 
  Country: FR (occurrence: FR)
  Receive Date: 20120731
  Receipt Date: 20121031
  Transmission Date: 20130627
  Serious: Yes (Hospitalization)
  Sender: FDA-Public Use
  Company Number: FR-009507513-1207FRA007968

PATIENT
  Age: 63 Year
  Sex: Male

DRUGS (30)
  1. EMEND [Suspect]
     Dosage: 125 mg, Once
     Route: 048
     Dates: start: 20120305, end: 20120305
  2. EMEND [Suspect]
     Dosage: 125 mg, Once
     Route: 048
     Dates: start: 20120327, end: 20120327
  3. EMEND [Suspect]
     Dosage: 125 mg, Once
     Route: 048
     Dates: start: 20120417, end: 20120417
  4. EMEND [Suspect]
     Dosage: 125 mg, Once
     Route: 048
     Dates: start: 20120515, end: 20120515
  5. ALIMTA [Suspect]
     Dosage: 900 mg, Once
     Route: 051
     Dates: start: 20120305, end: 20120305
  6. ALIMTA [Suspect]
     Dosage: 900 mg, Once
     Route: 051
     Dates: start: 20120327, end: 20120327
  7. ALIMTA [Suspect]
     Dosage: 900 mg, Once
     Route: 051
     Dates: start: 20120417, end: 20120417
  8. ALIMTA [Suspect]
     Dosage: 900 mg, Once
     Route: 051
     Dates: start: 20120515, end: 20120515
  9. CISPLATIN [Suspect]
     Dosage: 140 mg, Once
     Route: 051
     Dates: start: 20120305, end: 20120305
  10. CISPLATIN [Suspect]
     Dosage: 140 mg, Once
     Route: 051
     Dates: start: 20120327, end: 20120327
  11. CISPLATIN [Suspect]
     Dosage: 140 mg, Once
     Route: 051
     Dates: start: 20120417, end: 20120417
  12. CISPLATIN [Suspect]
     Dosage: 140 mg, Once
     Route: 051
     Dates: start: 20120515, end: 20120515
  13. ZOMETA [Suspect]
     Dosage: UNK
     Route: 051
     Dates: start: 20120515, end: 20120515
  14. LYRICA [Suspect]
     Dosage: 100 mg, bid
     Route: 048
  15. OXYCONTIN [Suspect]
     Dosage: 90 mg, qd
     Route: 048
  16. ONDANSETRON [Suspect]
     Dosage: 8 mg, Once
     Route: 051
     Dates: start: 20120305, end: 20120305
  17. ONDANSETRON [Suspect]
     Dosage: 8 mg, Once
     Route: 051
     Dates: start: 20120327, end: 20120327
  18. ONDANSETRON [Suspect]
     Dosage: 8 mg, Once
     Route: 051
     Dates: start: 20120417, end: 20120417
  19. ONDANSETRON [Suspect]
     Dosage: 8 mg, Once
     Route: 051
     Dates: start: 20120515, end: 20120515
  20. METHYLPREDNISOLONE [Suspect]
     Dosage: 120 mg, Once
     Route: 051
     Dates: start: 20120305, end: 20120305
  21. METHYLPREDNISOLONE [Suspect]
     Dosage: 120 mg, Once
     Route: 051
     Dates: start: 20120327, end: 20120327
  22. METHYLPREDNISOLONE [Suspect]
     Dosage: 120 mg, Once
     Route: 051
     Dates: start: 20120417, end: 20120417
  23. METHYLPREDNISOLONE [Suspect]
     Dosage: 120 mg, Once
     Route: 051
     Dates: start: 20120515, end: 20120515
  24. DEXAMETHASONE [Suspect]
     Dosage: 4 mg, bid
     Route: 048
     Dates: start: 20120304, end: 20120306
  25. DEXAMETHASONE [Suspect]
     Dosage: 4 mg, bid
     Route: 048
     Dates: start: 20120326, end: 20120328
  26. DEXAMETHASONE [Suspect]
     Dosage: 4 mg, bid
     Dates: start: 20120416, end: 20120416
  27. DEXAMETHASONE [Suspect]
     Dosage: 4 mg, bid
     Route: 048
     Dates: start: 20120514, end: 20120516
  28. SPECIAFOLDINE [Suspect]
     Dosage: 0.4 mg, qd
     Route: 048
     Dates: start: 20120227, end: 20120604
  29. OXYNORM [Concomitant]
     Dosage: 5 mg, prn
     Route: 048
  30. CYANOCOBALAMIN [Concomitant]
     Dosage: 1000 Microgram, UNK

REACTIONS (2)
  - Haemolytic anaemia [Not Recovered/Not Resolved]
  - Dyspnoea [Not Recovered/Not Resolved]
